FAERS Safety Report 9290673 (Version 1)
Quarter: 2013Q2

REPORT INFORMATION
  Report Type: Spontaneous
  Country: FR (occurrence: None)
  Receive Date: 20130513
  Receipt Date: 20130513
  Transmission Date: 20140414
  Serious: Yes (Death, Hospitalization, Other)
  Sender: FDA-Public Use
  Company Number: 2013P1005362

PATIENT
  Age: 95 Year
  Sex: Female

DRUGS (5)
  1. HEPARIN [Suspect]
     Indication: PULMONARY EMBOLISM
  2. BISOPRODOL [Concomitant]
  3. AMIODARONE [Concomitant]
  4. RAMIPRIL [Concomitant]
  5. FUROSEMIDE [Concomitant]

REACTIONS (9)
  - Deep vein thrombosis [None]
  - Deep vein thrombosis [None]
  - Deep vein thrombosis [None]
  - Peripheral artery thrombosis [None]
  - Heparin-induced thrombocytopenia [None]
  - Necrosis [None]
  - Renal failure [None]
  - Sudden death [None]
  - Disseminated intravascular coagulation [None]
